FAERS Safety Report 19448832 (Version 6)
Quarter: 2022Q2

REPORT INFORMATION
  Report Type: Other
  Country: DO (occurrence: None)
  Receive Date: 20210622
  Receipt Date: 20220629
  Transmission Date: 20220721
  Serious: No
  Sender: FDA-Public Use
  Company Number: DO-ROCHE-2854654

PATIENT
  Age: 37 Year
  Sex: Female
  Weight: 64 kg

DRUGS (19)
  1. OCRELIZUMAB [Suspect]
     Active Substance: OCRELIZUMAB
     Indication: Relapsing-remitting multiple sclerosis
     Dosage: 300 MG/250 ML
     Route: 042
     Dates: start: 20200129, end: 20200129
  2. OCRELIZUMAB [Suspect]
     Active Substance: OCRELIZUMAB
     Indication: Primary progressive multiple sclerosis
     Dosage: 300 MG/250 ML
     Route: 042
     Dates: start: 20200212, end: 20200212
  3. OCRELIZUMAB [Suspect]
     Active Substance: OCRELIZUMAB
     Dosage: 600 MG/500 ML
     Route: 042
     Dates: start: 20200805, end: 20200805
  4. OCRELIZUMAB [Suspect]
     Active Substance: OCRELIZUMAB
     Dosage: 600 MG/500 ML
     Route: 042
     Dates: start: 20210208, end: 20210208
  5. BIOTIN [Concomitant]
     Active Substance: BIOTIN
     Route: 048
     Dates: start: 201706
  6. VITAMIN D3 [Concomitant]
     Active Substance: CHOLECALCIFEROL
     Dosage: 5000 (UNIT NOT REPORTED)
     Route: 048
     Dates: start: 201506
  7. FLUCONAZOLE [Concomitant]
     Active Substance: FLUCONAZOLE
     Indication: Erythema
     Route: 048
     Dates: start: 20200729
  8. SOLU-MEDROL [Concomitant]
     Active Substance: METHYLPREDNISOLONE SODIUM SUCCINATE
     Route: 042
     Dates: start: 20200129, end: 20200129
  9. SOLU-MEDROL [Concomitant]
     Active Substance: METHYLPREDNISOLONE SODIUM SUCCINATE
     Route: 042
     Dates: start: 20200212, end: 20200212
  10. SOLU-MEDROL [Concomitant]
     Active Substance: METHYLPREDNISOLONE SODIUM SUCCINATE
     Route: 042
     Dates: start: 20200805, end: 20200805
  11. SOLU-MEDROL [Concomitant]
     Active Substance: METHYLPREDNISOLONE SODIUM SUCCINATE
     Route: 042
     Dates: start: 20210208, end: 20210208
  12. FENDRAMIN [Concomitant]
     Route: 042
     Dates: start: 20200129, end: 20200129
  13. FENDRAMIN [Concomitant]
     Route: 042
     Dates: start: 20200212, end: 20200212
  14. FENDRAMIN [Concomitant]
     Route: 042
     Dates: start: 20200805, end: 20200805
  15. FENDRAMIN [Concomitant]
     Route: 042
     Dates: start: 20210208, end: 20210208
  16. ACETAMINOPHEN [Concomitant]
     Active Substance: ACETAMINOPHEN
     Route: 048
     Dates: start: 20200129, end: 20200129
  17. ACETAMINOPHEN [Concomitant]
     Active Substance: ACETAMINOPHEN
     Route: 048
     Dates: start: 20200805, end: 20200805
  18. ACETAMINOPHEN [Concomitant]
     Active Substance: ACETAMINOPHEN
     Route: 048
     Dates: start: 20210208, end: 20210208
  19. SINOVAC COVID-19 VACCINE [Concomitant]
     Dosage: FIRST DOSE
     Dates: start: 20210609

REACTIONS (1)
  - SARS-CoV-2 test positive [Recovered/Resolved]

NARRATIVE: CASE EVENT DATE: 20210427
